FAERS Safety Report 14576845 (Version 2)
Quarter: 2019Q3

REPORT INFORMATION
  Report Type: Spontaneous
  Country: IT (occurrence: IT)
  Receive Date: 20180227
  Receipt Date: 20190822
  Transmission Date: 20191004
  Serious: Yes (Other)
  Sender: FDA-Public Use
  Company Number: IT-SUN PHARMACEUTICAL INDUSTRIES LTD-2018R1-164586

PATIENT
  Age: 4 Year
  Sex: Male

DRUGS (1)
  1. SERTRALINE [Suspect]
     Active Substance: SERTRALINE HYDROCHLORIDE
     Indication: MEDICATION ERROR
     Dosage: 50 MG, IN TOTAL
     Route: 065
     Dates: start: 20180118, end: 20180118

REACTIONS (2)
  - Drug abuse [Unknown]
  - Medication error [Unknown]

NARRATIVE: CASE EVENT DATE: 20180118
